FAERS Safety Report 14774288 (Version 3)
Quarter: 2018Q4

REPORT INFORMATION
  Report Type: Other
  Country: GB (occurrence: GB)
  Receive Date: 20180418
  Receipt Date: 20181008
  Transmission Date: 20190204
  Serious: Yes (Other)
  Sender: FDA-Public Use
  Company Number: GB-DIMETHAID UK LIMITED-DIM-001279-2018

PATIENT
  Age: 65 Year
  Sex: Male
  Weight: 65 kg

DRUGS (3)
  1. STATIN [Concomitant]
     Active Substance: UNSPECIFIED INGREDIENT
     Indication: PRODUCT USED FOR UNKNOWN INDICATION
     Dosage: 245
     Route: 065
  2. DICLOFENAC SODIUM. [Suspect]
     Active Substance: DICLOFENAC SODIUM
     Indication: PHOTODERMATOSIS
     Dosage: 17
     Route: 061
     Dates: start: 201708, end: 201708
  3. SOLARAZE [Suspect]
     Active Substance: DICLOFENAC SODIUM
     Indication: PHOTODERMATOSIS
     Dosage: UNK
     Route: 065

REACTIONS (8)
  - Pruritus [Recovered/Resolved]
  - Skin swelling [Recovered/Resolved]
  - Oedema [Recovered/Resolved]
  - Rash generalised [Recovered/Resolved]
  - Dermatitis allergic [Recovered/Resolved]
  - Swelling face [Recovered/Resolved]
  - Hypersensitivity [Unknown]
  - Product use in unapproved indication [Recovered/Resolved]

NARRATIVE: CASE EVENT DATE: 201708
